FAERS Safety Report 25583431 (Version 1)
Quarter: 2025Q3

REPORT INFORMATION
  Report Type: Spontaneous
  Country: US (occurrence: US)
  Receive Date: 20250721
  Receipt Date: 20250721
  Transmission Date: 20251020
  Serious: No
  Sender: SANOFI AVENTIS
  Company Number: US-SA-2025SA205060

PATIENT
  Age: 65 Year
  Sex: Female

DRUGS (7)
  1. KEVZARA [Suspect]
     Active Substance: SARILUMAB
     Indication: Polymyalgia rheumatica
     Dosage: 200 MG, QOW
     Route: 058
     Dates: start: 20250507
  2. PREDNISONE [Concomitant]
     Active Substance: PREDNISONE
  3. CYANOCOBALAMIN [Concomitant]
     Active Substance: CYANOCOBALAMIN
  4. VITAMIN D3 [Concomitant]
     Active Substance: CHOLECALCIFEROL
  5. PREDNISONE [Concomitant]
     Active Substance: PREDNISONE
  6. LISINOPRIL AND HYDROCHLOROTHIAZIDE [Concomitant]
     Active Substance: HYDROCHLOROTHIAZIDE\LISINOPRIL
  7. LIPITOR [Concomitant]
     Active Substance: ATORVASTATIN CALCIUM

REACTIONS (4)
  - Tooth infection [Unknown]
  - Toothache [Unknown]
  - Swelling face [Unknown]
  - Facial pain [Unknown]

NARRATIVE: CASE EVENT DATE: 20250711
